FAERS Safety Report 8428742-1 (Version None)
Quarter: 2012Q2

REPORT INFORMATION
  Report Type: 
  Country: None (occurrence: None)
  Receive Date: 20120612
  Receipt Date: 20120530
  Transmission Date: 20120825
  Serious: Yes (Other)
  Sender: FDA-Public Use
  Company Number: GB-VERTEX PHARMACEUTICALS INC.-000000000000000121

PATIENT
  Sex: Female

DRUGS (5)
  1. PEGINTERFERON ALFA [Concomitant]
     Indication: HEPATITIS C
     Dosage: DOSAGE FORM: UNSPECIFIED
     Route: 058
     Dates: start: 20120109
  2. TELAPREVIR [Suspect]
     Indication: HEPATITIS C
     Dosage: DOSAGE FORM: TABLET
     Route: 048
     Dates: start: 20120109, end: 20120316
  3. EURAX [Concomitant]
     Indication: PRURITUS
     Dates: start: 20120215
  4. RIBAVIRIN [Concomitant]
     Indication: HEPATITIS C
     Dosage: DOSAGE FORM: UNSPECIFIED
     Route: 065
     Dates: start: 20120109
  5. CETIRIZINE HCL [Concomitant]
     Indication: PRURITUS
     Dates: start: 20120215

REACTIONS (4)
  - PRURITUS [None]
  - PLATELET COUNT DECREASED [None]
  - MALAISE [None]
  - DYSPHAGIA [None]
